FAERS Safety Report 16813693 (Version 1)
Quarter: 2019Q3

REPORT INFORMATION
  Report Type: Spontaneous
  Country: US (occurrence: US)
  Receive Date: 20190917
  Receipt Date: 20190917
  Transmission Date: 20191005
  Serious: No
  Sender: FDA-Public Use
  Company Number: US-CIPLA LTD.-2019US00790

PATIENT

DRUGS (2)
  1. AMLODIPINE [Suspect]
     Active Substance: AMLODIPINE BESYLATE
     Indication: HYPERTENSION
     Dosage: 5 MILLIGRAM, QD CIPLA (ONE A DAY AT NIGHT)
     Route: 065
  2. AMLODIPINE [Suspect]
     Active Substance: AMLODIPINE BESYLATE
     Indication: HYPERTENSION
     Dosage: UNK (MANUFACTURER: M)
     Route: 065

REACTIONS (4)
  - Dysgeusia [Unknown]
  - Product substitution issue [Unknown]
  - Muscle spasms [Unknown]
  - Blood pressure increased [Unknown]
